FAERS Safety Report 6520242-9 (Version None)
Quarter: 2009Q4

REPORT INFORMATION
  Report Type: 
  Country: None (occurrence: None)
  Receive Date: 20091229
  Receipt Date: 20091214
  Transmission Date: 20100525
  Serious: Yes (Other)
  Sender: FDA-Public Use
  Company Number: US-PFIZER INC-2009312680

PATIENT
  Sex: Male
  Weight: 68.038 kg

DRUGS (1)
  1. GEODON [Suspect]
     Indication: BIPOLAR DISORDER
     Dosage: 20MG IN THE MORNING AND 60MG IN THE NIGHT
     Route: 048
     Dates: start: 20091110

REACTIONS (1)
  - SEDATION [None]
